FAERS Safety Report 9895174 (Version 1)
Quarter: 2014Q1

REPORT INFORMATION
  Report Type: Spontaneous
  Country: US (occurrence: US)
  Receive Date: 20140213
  Receipt Date: 20140213
  Transmission Date: 20141002
  Serious: No
  Sender: FDA-Public Use
  Company Number: US-BRISTOL-MYERS SQUIBB COMPANY-19221076

PATIENT
  Sex: Male

DRUGS (1)
  1. ORENCIA [Suspect]
     Dosage: LOT#:3B77054,EXP DT:DEC15,LOT#:3B73684,EXP DT:OCT15,LOT#:3B73684,EXP DT:OCT15.

REACTIONS (1)
  - Medication error [Unknown]
